FAERS Safety Report 17224977 (Version 1)
Quarter: 2020Q1

REPORT INFORMATION
  Report Type: Spontaneous
  Country: DE (occurrence: DE)
  Receive Date: 20200102
  Receipt Date: 20200102
  Transmission Date: 20200409
  Serious: Yes (Death, Hospitalization)
  Sender: FDA-Public Use
  Company Number: DE-MYLANLABS-2019M1133006

PATIENT
  Age: 37 Year
  Sex: Male

DRUGS (3)
  1. PENICILLIN G                       /00000901/ [Suspect]
     Active Substance: PENICILLIN G
     Indication: MENINGOENCEPHALITIS BACTERIAL
     Route: 042
  2. CLARITHROMYCIN. [Suspect]
     Active Substance: CLARITHROMYCIN
     Indication: MENINGOENCEPHALITIS BACTERIAL
     Route: 042
  3. DEXAMETHASONE. [Concomitant]
     Active Substance: DEXAMETHASONE
     Indication: MENINGOENCEPHALITIS BACTERIAL
     Route: 042

REACTIONS (1)
  - Drug ineffective [Fatal]
